FAERS Safety Report 6378233-7 (Version None)
Quarter: 2009Q3

REPORT INFORMATION
  Report Type: 
  Country: None (occurrence: None)
  Receive Date: 20090925
  Receipt Date: 20090910
  Transmission Date: 20100115
  Serious: Yes (Hospitalization)
  Sender: FDA-Public Use
  Company Number: SE-GENENTECH-291035

PATIENT
  Sex: Male

DRUGS (16)
  1. MABTHERA [Suspect]
     Indication: RHEUMATOID ARTHRITIS
     Dosage: UNK
     Route: 042
     Dates: start: 20090401
  2. METHOTREXATE [Suspect]
     Indication: RHEUMATOID ARTHRITIS
     Dosage: 2.5 MG, UNK
     Route: 065
  3. PREDNISOLONE [Suspect]
     Indication: RHEUMATOID ARTHRITIS
     Dosage: 2.5 MG, UNK
     Route: 048
  4. OXYNORM [Concomitant]
     Indication: DRUG USE FOR UNKNOWN INDICATION
  5. ALENDRONIC ACID [Concomitant]
     Indication: DRUG USE FOR UNKNOWN INDICATION
  6. CALCICHEW [Concomitant]
     Indication: DRUG USE FOR UNKNOWN INDICATION
  7. NITROMEX [Concomitant]
     Indication: DRUG USE FOR UNKNOWN INDICATION
  8. FOLACIN [Concomitant]
     Indication: DRUG USE FOR UNKNOWN INDICATION
  9. LASIX [Concomitant]
     Indication: DRUG USE FOR UNKNOWN INDICATION
  10. BEHEPAN [Concomitant]
     Indication: DRUG USE FOR UNKNOWN INDICATION
  11. SELOKEN [Concomitant]
     Indication: DRUG USE FOR UNKNOWN INDICATION
  12. OXASCAND [Concomitant]
     Indication: DRUG USE FOR UNKNOWN INDICATION
  13. IMDUR [Concomitant]
     Indication: DRUG USE FOR UNKNOWN INDICATION
  14. TROMBYL [Concomitant]
     Indication: DRUG USE FOR UNKNOWN INDICATION
  15. IMOVANE [Concomitant]
     Indication: DRUG USE FOR UNKNOWN INDICATION
  16. ALFADIL [Concomitant]
     Indication: DRUG USE FOR UNKNOWN INDICATION

REACTIONS (6)
  - ACUTE RESPIRATORY DISTRESS SYNDROME [None]
  - ALKALOSIS [None]
  - BLOOD ELECTROLYTES ABNORMAL [None]
  - BRONCHOPULMONARY ASPERGILLOSIS [None]
  - LEUKOPENIA [None]
  - PNEUMOCYSTIS JIROVECI INFECTION [None]
